FAERS Safety Report 18375673 (Version 1)
Quarter: 2020Q4

REPORT INFORMATION
  Report Type: Spontaneous
  Country: US (occurrence: US)
  Receive Date: 20201004
  Receipt Date: 20201004
  Transmission Date: 20210114
  Serious: Yes (Death)
  Sender: FDA-Public Use
  Company Number: None

PATIENT
  Age: 3 Decade
  Sex: Male

DRUGS (3)
  1. AZITHROMYCIN ANHYDROUS. [Suspect]
     Active Substance: AZITHROMYCIN ANHYDROUS
  2. HYDROXYCHLOROQUINE [Suspect]
     Active Substance: HYDROXYCHLOROQUINE
     Indication: COVID-19
  3. LOPINAVIR-RITONAVIR [Suspect]
     Active Substance: LOPINAVIR\RITONAVIR

REACTIONS (3)
  - Off label use [None]
  - Arrhythmia [None]
  - Cardiac arrest [None]
